FAERS Safety Report 4733148-2 (Version None)
Quarter: 2005Q3

REPORT INFORMATION
  Report Type: 
  Country: None (occurrence: None)
  Receive Date: 20050729
  Receipt Date: 20050616
  Transmission Date: 20060218
  Serious: Yes (Hospitalization)
  Sender: FDA-Public Use
  Company Number: 11650

PATIENT
  Age: 83 Year
  Sex: Female

DRUGS (3)
  1. AMIODARONE [Suspect]
     Indication: ATRIAL FIBRILLATION
     Dosage: 300 MG ONCE/700 MG IV
     Route: 042
     Dates: start: 20020401
  2. HEPARIN [Concomitant]
  3. FUROSEMIDE [Concomitant]

REACTIONS (6)
  - BLOOD CREATININE INCREASED [None]
  - BLOOD UREA INCREASED [None]
  - HEPATITIS ACUTE [None]
  - HEPATITIS TOXIC [None]
  - INTERNATIONAL NORMALISED RATIO INCREASED [None]
  - OLIGURIA [None]
